FAERS Safety Report 7276677-2 (Version None)
Quarter: 2011Q1

REPORT INFORMATION
  Report Type: 
  Country: None (occurrence: None)
  Receive Date: 20110204
  Receipt Date: 20110124
  Transmission Date: 20110831
  Serious: Yes (Hospitalization, Disabling)
  Sender: FDA-Public Use
  Company Number: US-MERCK-1004USA02501

PATIENT
  Age: 45 Year
  Sex: Female
  Weight: 68 kg

DRUGS (8)
  1. BONIVA [Suspect]
     Indication: OSTEOPENIA
     Route: 048
     Dates: start: 20061201, end: 20080330
  2. FOSAMAX [Suspect]
     Indication: OSTEOPOROSIS
     Route: 048
     Dates: start: 20000101, end: 20090101
  3. FOSAMAX [Suspect]
     Route: 048
     Dates: start: 20050601, end: 20061116
  4. FOSAMAX [Suspect]
     Route: 048
     Dates: start: 20050601, end: 20061116
  5. FOSAMAX [Suspect]
     Route: 048
     Dates: start: 20050128, end: 20050319
  6. BONIVA [Suspect]
     Indication: OSTEOPOROSIS
     Route: 048
     Dates: start: 20061201, end: 20080330
  7. FOSAMAX [Suspect]
     Route: 048
     Dates: start: 20050128, end: 20050319
  8. FOSAMAX [Suspect]
     Indication: OSTEOPENIA
     Route: 048
     Dates: start: 20000101, end: 20090101

REACTIONS (30)
  - STRESS FRACTURE [None]
  - DILATATION ATRIAL [None]
  - KYPHOSCOLIOSIS [None]
  - GINGIVAL DISORDER [None]
  - GASTROOESOPHAGEAL REFLUX DISEASE [None]
  - COUGH [None]
  - FEMUR FRACTURE [None]
  - ARTHROPATHY [None]
  - NECK PAIN [None]
  - RESTRICTIVE PULMONARY DISEASE [None]
  - CONTUSION [None]
  - DEPRESSION [None]
  - OSTEOPOROSIS [None]
  - BRONCHITIS [None]
  - NAUSEA [None]
  - HYPERTENSION [None]
  - TACHYCARDIA [None]
  - BLOOD CHOLESTEROL INCREASED [None]
  - ANXIETY DISORDER [None]
  - EYELID PTOSIS [None]
  - LOW TURNOVER OSTEOPATHY [None]
  - REACTIVE AIRWAYS DYSFUNCTION SYNDROME [None]
  - CHEST PAIN [None]
  - MUSCULOSKELETAL CHEST PAIN [None]
  - FALL [None]
  - DYSPNOEA EXERTIONAL [None]
  - DIARRHOEA [None]
  - DEPRESSION POSTOPERATIVE [None]
  - EAR PAIN [None]
  - PAIN IN EXTREMITY [None]
